FAERS Safety Report 10678758 (Version 2)
Quarter: 2015Q1

REPORT INFORMATION
  Report Type: Spontaneous
  Country: JP (occurrence: None)
  Receive Date: 20141223
  Receipt Date: 20150114
  Transmission Date: 20150720
  Serious: Yes (Other)
  Sender: FDA-Public Use
  Company Number: 2014FE03630

PATIENT
  Age: 86 Year
  Sex: Male

DRUGS (1)
  1. GONAX (DEGARELIX) POWDER AND SOLVENT FOR SOLUTION FOR INJECTION, 80MG [Suspect]
     Active Substance: DEGARELIX
     Indication: PROSTATE CANCER

REACTIONS (1)
  - Urinary retention [None]
